FAERS Safety Report 11991465 (Version 1)
Quarter: 2016Q1

REPORT INFORMATION
  Report Type: Spontaneous
  Country: US (occurrence: None)
  Receive Date: 20160202
  Receipt Date: 20160202
  Transmission Date: 20160526
  Serious: No
  Sender: FDA-Public Use
  Company Number: None

PATIENT
  Age: 51 Year
  Sex: Female
  Weight: 65.77 kg

DRUGS (2)
  1. EFFEXOR XR [Suspect]
     Active Substance: VENLAFAXINE HYDROCHLORIDE
     Indication: DEPRESSION
     Dosage: 1 PILL ONCE DAILY TAKEN BY MOUTH
     Route: 048
     Dates: start: 20151223, end: 20160201
  2. BLUE ICE FERMENTED COD-LIVER OIL/VITAMIN BUTTER [Concomitant]

REACTIONS (2)
  - Product quality issue [None]
  - Rash generalised [None]

NARRATIVE: CASE EVENT DATE: 20160129
